FAERS Safety Report 20382052 (Version 2)
Quarter: 2024Q4

REPORT INFORMATION
  Report Type: Spontaneous
  Country: US (occurrence: US)
  Receive Date: 20220127
  Receipt Date: 20241026
  Transmission Date: 20250115
  Serious: No
  Sender: PIRAMAL
  Company Number: US-PCCINC-2021-PEL-000148

PATIENT

DRUGS (2)
  1. GABLOFEN [Suspect]
     Active Substance: BACLOFEN
     Indication: Muscle spasticity
     Dosage: 75 MICROGRAM PER DAY
     Route: 037
  2. BACLOFEN [Concomitant]
     Active Substance: BACLOFEN
     Indication: Muscle spasticity
     Dosage: UNK
     Route: 048

REACTIONS (1)
  - Muscle spasticity [Not Recovered/Not Resolved]
